FAERS Safety Report 8502849-2 (Version None)
Quarter: 2012Q3

REPORT INFORMATION
  Report Type: 
  Country: None (occurrence: None)
  Receive Date: 20120711
  Receipt Date: 20120704
  Transmission Date: 20120928
  Serious: Yes (Hospitalization, Other)
  Sender: FDA-Public Use
  Company Number: HU-ABBOTT-12P-076-0932797-00

PATIENT
  Sex: Female
  Weight: 48 kg

DRUGS (5)
  1. ARAVA [Concomitant]
     Indication: PRODUCT USED FOR UNKNOWN INDICATION
     Route: 048
     Dates: start: 20040101
  2. METHOTREXATE [Concomitant]
     Dates: start: 19930101, end: 20040101
  3. HUMIRA [Suspect]
     Indication: RHEUMATOID ARTHRITIS
     Route: 058
     Dates: start: 20070123, end: 20120201
  4. METHOTREXATE [Concomitant]
     Indication: PRODUCT USED FOR UNKNOWN INDICATION
     Dosage: 15 MG WEEKLY
     Dates: start: 20040701
  5. MEDROL [Concomitant]
     Indication: PRODUCT USED FOR UNKNOWN INDICATION
     Route: 048
     Dates: start: 20040701

REACTIONS (3)
  - GLIOBLASTOMA MULTIFORME [None]
  - HEMIPLEGIA [None]
  - HEMIPARESIS [None]
